FAERS Safety Report 5808177-8 (Version None)
Quarter: 2008Q3

REPORT INFORMATION
  Report Type: 
  Country: None (occurrence: None)
  Receive Date: 20080709
  Receipt Date: 20080701
  Transmission Date: 20090109
  Serious: Yes (Hospitalization, Other)
  Sender: FDA-Public Use
  Company Number: 163-20785-08041667

PATIENT
  Age: 44 Year
  Sex: Female

DRUGS (4)
  1. THALOMID [Suspect]
     Indication: CROHN'S DISEASE
     Dosage: 50 MG, 1 IN 1 D, ORAL; 50 MG, 1 IN1  D, ORAL
     Route: 048
     Dates: start: 20060222, end: 20080422
  2. THALOMID [Suspect]
     Indication: CROHN'S DISEASE
     Dosage: 50 MG, 1 IN 1 D, ORAL; 50 MG, 1 IN1  D, ORAL
     Route: 048
     Dates: start: 20080601
  3. NEXIUM [Concomitant]
  4. FISH OIL (FISH OIL) [Concomitant]

REACTIONS (2)
  - APPENDICITIS PERFORATED [None]
  - DRUG INEFFECTIVE [None]
